FAERS Safety Report 22529287 (Version 1)
Quarter: 2023Q2

REPORT INFORMATION
  Report Type: Spontaneous
  Country: GB (occurrence: GB)
  Receive Date: 20230607
  Receipt Date: 20230607
  Transmission Date: 20230722
  Serious: Yes (Other)
  Sender: FDA-Public Use
  Company Number: GB-MHRA-MED-202305261505459080-SQGVB

PATIENT

DRUGS (1)
  1. PREGABALIN [Suspect]
     Active Substance: PREGABALIN
     Indication: Product used for unknown indication
     Route: 065

REACTIONS (5)
  - Withdrawal syndrome [Recovered/Resolved]
  - Depression [Recovered/Resolved]
  - Tenderness [Recovered/Resolved]
  - Bruxism [Recovered/Resolved]
  - Headache [Recovered/Resolved]
